FAERS Safety Report 24928592 (Version 1)
Quarter: 2025Q1

REPORT INFORMATION
  Report Type: Spontaneous
  Country: CN (occurrence: CN)
  Receive Date: 20250205
  Receipt Date: 20250205
  Transmission Date: 20250409
  Serious: Yes (Other)
  Sender: ASTELLAS
  Company Number: CN-ASTELLAS-2025-AER-007080

PATIENT
  Age: 75 Year
  Sex: Male
  Weight: 40.0 kg

DRUGS (2)
  1. ISAVUCONAZOLE [Suspect]
     Active Substance: ISAVUCONAZOLE
     Indication: Bronchopulmonary aspergillosis
     Dosage: TID, FOR THE FIRST 48 HOURS
     Route: 050
     Dates: start: 20250108, end: 20250109
  2. ISAVUCONAZOLE [Suspect]
     Active Substance: ISAVUCONAZOLE
     Dosage: QD
     Route: 050
     Dates: start: 20250110, end: 20250111

REACTIONS (2)
  - Ventricular fibrillation [Recovering/Resolving]
  - Atrial fibrillation [Recovering/Resolving]

NARRATIVE: CASE EVENT DATE: 20250111
